FAERS Safety Report 25108823 (Version 1)
Quarter: 2025Q1

REPORT INFORMATION
  Report Type: Other
  Country: CN (occurrence: CN)
  Receive Date: 20250322
  Receipt Date: 20250322
  Transmission Date: 20250409
  Serious: Yes (Hospitalization, Other)
  Sender: ANI
  Company Number: CN-ANIPHARMA-016086

PATIENT
  Age: 55 Year
  Sex: Male

DRUGS (2)
  1. SULFAMETHOXAZOLE\TRIMETHOPRIM [Suspect]
     Active Substance: SULFAMETHOXAZOLE\TRIMETHOPRIM
     Indication: Burkholderia pseudomallei infection
  2. MEROPENEM [Concomitant]
     Active Substance: MEROPENEM
     Indication: Burkholderia pseudomallei infection

REACTIONS (2)
  - Pneumonia necrotising [Unknown]
  - Rash maculo-papular [Recovering/Resolving]
